FAERS Safety Report 15775229 (Version 1)
Quarter: 2018Q4

REPORT INFORMATION
  Report Type: Spontaneous
  Country: GB (occurrence: GB)
  Receive Date: 20181231
  Receipt Date: 20181231
  Transmission Date: 20190205
  Serious: Yes (Death, Hospitalization, Disabling, Other)
  Sender: FDA-Public Use
  Company Number: GB-ACCORD-098679

PATIENT
  Age: 69 Year
  Sex: Female

DRUGS (6)
  1. HUMULIN NOS [Concomitant]
     Active Substance: INSULIN HUMAN
     Dosage: AS DIRECTED
     Route: 058
  2. FUROSEMIDE. [Suspect]
     Active Substance: FUROSEMIDE
     Indication: OEDEMA
  3. AMLODIPINE [Concomitant]
     Active Substance: AMLODIPINE BESYLATE
     Indication: HYPERTENSION
     Route: 048
  4. SPIRONOLACTONE. [Concomitant]
     Active Substance: SPIRONOLACTONE
     Indication: OEDEMA
     Route: 048
  5. RIFAXIMIN. [Concomitant]
     Active Substance: RIFAXIMIN
     Route: 048
  6. CARVEDILOL/CARVEDILOL HYDROCHLODRIDE [Concomitant]
     Indication: VARICOSE VEIN
     Route: 048

REACTIONS (4)
  - Cardiac failure [Fatal]
  - Renal impairment [Unknown]
  - Pneumonia [Not Recovered/Not Resolved]
  - General physical health deterioration [Unknown]

NARRATIVE: CASE EVENT DATE: 20151002
